FAERS Safety Report 7820159-3 (Version None)
Quarter: 2011Q4

REPORT INFORMATION
  Report Type: 
  Country: None (occurrence: None)
  Receive Date: 20111018
  Receipt Date: 20111005
  Transmission Date: 20120403
  Serious: Yes (Other)
  Sender: FDA-Public Use
  Company Number: PHHY2011BR89031

PATIENT
  Sex: Female

DRUGS (3)
  1. EXELON [Suspect]
     Dosage: 18 MG/10 CM2
     Route: 062
  2. EXELON [Suspect]
     Dosage: 9MG/5CM2
     Route: 062
  3. EXELON [Suspect]
     Dosage: 9MG/5CM2
     Route: 062

REACTIONS (3)
  - AMNESIA [None]
  - DISORIENTATION [None]
  - AGGRESSION [None]
